FAERS Safety Report 6728720-4 (Version None)
Quarter: 2010Q2

REPORT INFORMATION
  Report Type: 
  Country: None (occurrence: None)
  Receive Date: 20100517
  Receipt Date: 20100507
  Transmission Date: 20101027
  Serious: Yes (Other)
  Sender: FDA-Public Use
  Company Number: FR-ABBOTT-10P-056-0639935-00

PATIENT
  Sex: Male

DRUGS (3)
  1. SECALIP [Suspect]
     Indication: HYPERCHOLESTEROLAEMIA
     Route: 048
     Dates: end: 20100415
  2. SOTALOL HCL [Concomitant]
     Indication: HYPERTENSION
     Route: 048
  3. HYZAAR [Concomitant]
     Indication: HYPERTENSION
     Route: 048

REACTIONS (1)
  - BURNING SENSATION [None]
